FAERS Safety Report 19970139 (Version 1)
Quarter: 2021Q4

REPORT INFORMATION
  Report Type: Report from Study
  Country: BR (occurrence: BR)
  Receive Date: 20211019
  Receipt Date: 20211019
  Transmission Date: 20220303
  Serious: Yes (Hospitalization, Disabling, Other)
  Sender: FDA-Public Use
  Company Number: BR-TAKEDA-BR201944465

PATIENT
  Age: 40 Year
  Sex: Male
  Weight: 50 kg

DRUGS (3)
  1. HEMO-8R [Suspect]
     Active Substance: ANTIHEMOPHILIC FACTOR, HUMAN RECOMBINANT
     Indication: Factor VIII deficiency
     Dosage: UNK
     Route: 065
     Dates: start: 20001011
  2. HEMO-8R [Suspect]
     Active Substance: ANTIHEMOPHILIC FACTOR, HUMAN RECOMBINANT
     Indication: Prophylaxis
     Dosage: UNK, 3/WEEK
     Route: 065
  3. HEMO-8R [Suspect]
     Active Substance: ANTIHEMOPHILIC FACTOR, HUMAN RECOMBINANT
     Dosage: UNK
     Route: 042

REACTIONS (19)
  - Haemorrhagic stroke [Recovered/Resolved with Sequelae]
  - Coma [Recovered/Resolved with Sequelae]
  - Blood pressure abnormal [Unknown]
  - Central nervous system haemorrhage [Unknown]
  - Seizure [Recovered/Resolved with Sequelae]
  - Paralysis [Recovered/Resolved with Sequelae]
  - Ischaemic stroke [Unknown]
  - Speech disorder [Not Recovered/Not Resolved]
  - Cerebrovascular accident [Unknown]
  - Fall [Unknown]
  - Bedridden [Unknown]
  - Decubitus ulcer [Unknown]
  - Feeling abnormal [Unknown]
  - Headache [Unknown]
  - Crying [Not Recovered/Not Resolved]
  - Somnolence [Unknown]
  - Restlessness [Unknown]
  - Heart rate abnormal [Unknown]
  - Anxiety [Unknown]

NARRATIVE: CASE EVENT DATE: 20190601
